FAERS Safety Report 14471374 (Version 1)
Quarter: 2018Q1

REPORT INFORMATION
  Report Type: Spontaneous
  Country: US (occurrence: US)
  Receive Date: 20180130
  Receipt Date: 20180130
  Transmission Date: 20180509
  Serious: Yes (Hospitalization)
  Sender: FDA-Public Use
  Company Number: None

PATIENT
  Age: 65 Year
  Sex: Female
  Weight: 108.9 kg

DRUGS (1)
  1. REGORAFENIB [Suspect]
     Active Substance: REGORAFENIB
     Indication: COLORECTAL CANCER METASTATIC
     Dosage: 160MG DAILY ON DAYS 1-21 ORAL
     Route: 048
     Dates: start: 20170616

REACTIONS (3)
  - Chest X-ray abnormal [None]
  - Pain in extremity [None]
  - Urinary tract infection [None]

NARRATIVE: CASE EVENT DATE: 20180128
